FAERS Safety Report 20138330 (Version 1)
Quarter: 2021Q4

REPORT INFORMATION
  Report Type: Spontaneous
  Country: PL (occurrence: PL)
  Receive Date: 20211202
  Receipt Date: 20211202
  Transmission Date: 20220304
  Serious: Yes (Other)
  Sender: FDA-Public Use
  Company Number: None

PATIENT
  Sex: Female

DRUGS (1)
  1. GABAPENTIN [Suspect]
     Active Substance: GABAPENTIN
     Indication: Muscle spasticity
     Dosage: PREVIOUSLY FOR  2 YEARS 3X 800. HALF A YEAR AGO THE DOSE HAS BEEN REDUCED, CURRENTLY TO 3 X 300 MG,
     Route: 048

REACTIONS (17)
  - Chest discomfort [Unknown]
  - Somnolence [Unknown]
  - Decreased appetite [Unknown]
  - Eye irritation [Unknown]
  - Mental impairment [Unknown]
  - Malaise [Unknown]
  - Fatigue [Unknown]
  - Dizziness [Unknown]
  - Mouth injury [Unknown]
  - Anxiety [Unknown]
  - Lip injury [Unknown]
  - Swollen tongue [Unknown]
  - Aptyalism [Unknown]
  - Oedema mouth [Unknown]
  - Mental impairment [Unknown]
  - Weight decreased [Unknown]
  - Eye pruritus [Unknown]
